FAERS Safety Report 10443706 (Version 1)
Quarter: 2014Q3

REPORT INFORMATION
  Report Type: Spontaneous
  Country: US (occurrence: None)
  Receive Date: 20140909
  Receipt Date: 20140909
  Transmission Date: 20150326
  Serious: Yes (Hospitalization)
  Sender: FDA-Public Use
  Company Number: None

PATIENT
  Age: 52 Year
  Sex: Male
  Weight: 106.14 kg

DRUGS (8)
  1. COENZYME Q10 [Concomitant]
     Active Substance: UBIDECARENONE
  2. DIPHENHYRAMINE [Concomitant]
  3. RANITIDINE [Concomitant]
     Active Substance: RANITIDINE\RANITIDINE HYDROCHLORIDE
  4. VITAMIN D [Concomitant]
     Active Substance: CHOLECALCIFEROL
  5. LISINOPRIL AND HYDROCHLOROTHIAZIDE [Concomitant]
     Active Substance: HYDROCHLOROTHIAZIDE\LISINOPRIL
  6. HYDROMORPHONE [Concomitant]
     Active Substance: HYDROMORPHONE
  7. TESTOSTERONE. [Concomitant]
     Active Substance: TESTOSTERONE
  8. COPAXONE [Suspect]
     Active Substance: GLATIRAMER ACETATE
     Indication: MULTIPLE SCLEROSIS
     Dosage: 20 MG QD SUBCUTANEOUS
     Route: 058
     Dates: start: 20110902, end: 20140902

REACTIONS (5)
  - Pharyngeal oedema [None]
  - Erythema [None]
  - Swollen tongue [None]
  - Chest discomfort [None]
  - Lip swelling [None]

NARRATIVE: CASE EVENT DATE: 20140902
